FAERS Safety Report 13236743 (Version 1)
Quarter: 2017Q1

REPORT INFORMATION
  Report Type: Report from Study
  Country: US (occurrence: US)
  Receive Date: 20170215
  Receipt Date: 20170215
  Transmission Date: 20170428
  Serious: Yes (Hospitalization, Other)
  Sender: FDA-Public Use
  Company Number: US-PFIZER INC-2017024860

PATIENT
  Age: 59 Year
  Sex: Female

DRUGS (1)
  1. IBRANCE [Suspect]
     Active Substance: PALBOCICLIB
     Indication: BREAST CANCER
     Dosage: 125 MG, CYCLIC, (DAILY; 3 WEEKS ON/1 WEEK OFF)
     Route: 048
     Dates: start: 20170114

REACTIONS (10)
  - Raynaud^s phenomenon [Unknown]
  - Inflammation [Unknown]
  - Urinary tract infection [Unknown]
  - Dyspepsia [Unknown]
  - Pain in extremity [Unknown]
  - Pneumonia [Unknown]
  - Vomiting [Unknown]
  - Dyspnoea [Unknown]
  - Stomatitis [Unknown]
  - Nausea [Unknown]
